FAERS Safety Report 4993536-6 (Version None)
Quarter: 2006Q2

REPORT INFORMATION
  Report Type: 
  Country: None (occurrence: None)
  Receive Date: 20060503
  Receipt Date: 20060503
  Transmission Date: 20061013
  Serious: Yes (Life-Threatening)
  Sender: FDA-Public Use
  Company Number: None

PATIENT
  Age: 32 Year
  Sex: Male
  Weight: 81.6475 kg

DRUGS (2)
  1. CITALOPRAM HYDROBROMIDE [Suspect]
     Indication: SLEEP DISORDER
     Dosage: 20 MG ONCE DAILY PO
     Route: 048
     Dates: start: 20041022, end: 20050215
  2. CITALOPRAM HYDROBROMIDE [Suspect]
     Indication: SLEEP DISORDER
     Dosage: 20 MG ONCE DAILY PO
     Route: 048
     Dates: start: 20050301, end: 20050915

REACTIONS (6)
  - DRUG WITHDRAWAL SYNDROME [None]
  - FEELING ABNORMAL [None]
  - IMMUNE SYSTEM DISORDER [None]
  - PERSONALITY DISORDER [None]
  - SELF-INJURIOUS IDEATION [None]
  - SEXUAL DYSFUNCTION [None]
